FAERS Safety Report 7263732-6 (Version None)
Quarter: 2011Q1

REPORT INFORMATION
  Report Type: 
  Country: None (occurrence: None)
  Receive Date: 20110130
  Receipt Date: 20101026
  Transmission Date: 20110831
  Serious: No
  Sender: FDA-Public Use
  Company Number: US-ABBOTT-10P-163-0682241-00

PATIENT
  Sex: Female
  Weight: 82.174 kg

DRUGS (6)
  1. MORPHINE [Concomitant]
     Indication: PAIN
  2. HUMIRA [Suspect]
     Indication: PSORIATIC ARTHROPATHY
     Dates: start: 20080101
  3. COMPAZINE [Concomitant]
     Indication: NAUSEA
  4. PERCOCET [Concomitant]
     Indication: PAIN
  5. HUMIRA [Suspect]
     Indication: RHEUMATOID ARTHRITIS
  6. HUMIRA [Suspect]
     Indication: OSTEOARTHRITIS

REACTIONS (1)
  - INJECTION SITE NODULE [None]
